FAERS Safety Report 15750231 (Version 2)
Quarter: 2019Q3

REPORT INFORMATION
  Report Type: Spontaneous
  Country: US (occurrence: US)
  Receive Date: 20181221
  Receipt Date: 20190802
  Transmission Date: 20191004
  Serious: Yes (Other)
  Sender: FDA-Public Use
  Company Number: US-TEVA-2018-US-991444

PATIENT

DRUGS (9)
  1. LISINOPRIL 40 MG [Concomitant]
     Active Substance: LISINOPRIL
     Route: 065
  2. FLUTICASONE PROPIONATE W/SALMETEROL DISKUS 250/50 MCG [Concomitant]
     Dosage: STRENGTH: 250/50 MCG
     Route: 065
  3. AMLODIPINE [Concomitant]
     Active Substance: AMLODIPINE BESYLATE
     Route: 065
  4. INCRUSE 62.5MG [Concomitant]
     Route: 065
  5. METOPROLOL 100 MG [Concomitant]
     Active Substance: METOPROLOL
     Route: 065
  6. LOW DOSE ASPIRIN 81 MG [Concomitant]
     Route: 065
  7. ATORVASTATIN 40 MG [Concomitant]
     Active Substance: ATORVASTATIN
     Route: 065
  8. DIPHENHYDRAMINE 75 MG [Concomitant]
     Route: 065
  9. TRAZODONE [Suspect]
     Active Substance: TRAZODONE HYDROCHLORIDE
     Route: 065

REACTIONS (3)
  - Choking [Not Recovered/Not Resolved]
  - Product use complaint [Unknown]
  - Product shape issue [Unknown]
